FAERS Safety Report 4337711-2 (Version None)
Quarter: 2004Q2

REPORT INFORMATION
  Report Type: 
  Country: None (occurrence: None)
  Receive Date: 20040413
  Receipt Date: 20030718
  Transmission Date: 20050107
  Serious: Yes (Other)
  Sender: FDA-Public Use
  Company Number: GB-ROCHE-342762

PATIENT
  Sex: Female
  Weight: 3.1 kg

DRUGS (3)
  1. NEOTIGASON [Suspect]
     Indication: PSORIASIS
     Dosage: THE PATIENT RECEIVED A CUMULATIVE DOSE OF 10 - 20 MG DAILY.
     Dates: start: 20010115
  2. NEOTIGASON [Suspect]
     Dates: start: 20010605
  3. NEOTIGASON [Suspect]
     Dates: start: 20010728, end: 20020115

REACTIONS (3)
  - NO ADVERSE EFFECT [None]
  - NORMAL NEWBORN [None]
  - PREGNANCY [None]
